FAERS Safety Report 16471116 (Version 6)
Quarter: 2019Q3

REPORT INFORMATION
  Report Type: Spontaneous
  Country: GB (occurrence: GB)
  Receive Date: 20190624
  Receipt Date: 20190812
  Transmission Date: 20191004
  Serious: Yes (Other)
  Sender: FDA-Public Use
  Company Number: GB-ASTRAZENECA-2019SE54948

PATIENT
  Age: 23 Year
  Sex: Male

DRUGS (2)
  1. PROCYCLIDINE [Suspect]
     Active Substance: PROCYCLIDINE
     Route: 065
  2. SEROQUEL [Suspect]
     Active Substance: QUETIAPINE FUMARATE
     Route: 048
     Dates: start: 2012

REACTIONS (38)
  - Accidental overdose [Unknown]
  - Suicidal ideation [Unknown]
  - Long QT syndrome [Unknown]
  - Psychotic disorder [Unknown]
  - Sleep apnoea syndrome [Unknown]
  - Eye disorder [Unknown]
  - Fatigue [Unknown]
  - Weight increased [Unknown]
  - Hepatic enzyme increased [Unknown]
  - Muscle atrophy [Unknown]
  - Dyspnoea [Unknown]
  - Pain [Unknown]
  - Nerve injury [Unknown]
  - Hepatic steatosis [Unknown]
  - Pneumonia [Unknown]
  - Tongue biting [Unknown]
  - Cramp-fasciculation syndrome [Unknown]
  - Pallor [Unknown]
  - Brain injury [Unknown]
  - Cardiometabolic syndrome [Unknown]
  - Tooth erosion [Unknown]
  - Headache [Unknown]
  - Dystonia [Unknown]
  - Nervous system disorder [Unknown]
  - Oxygen saturation decreased [Unknown]
  - Anxiety [Unknown]
  - Blood cholesterol increased [Unknown]
  - Muscle contractions involuntary [Unknown]
  - Pain in jaw [Unknown]
  - Malaise [Unknown]
  - Angina pectoris [Unknown]
  - Weight decreased [Unknown]
  - White blood cell count decreased [Unknown]
  - Memory impairment [Unknown]
  - Sleep terror [Unknown]
  - Gynaecomastia [Unknown]
  - Tardive dyskinesia [Unknown]
  - Blood triglycerides increased [Unknown]

NARRATIVE: CASE EVENT DATE: 2012
